FAERS Safety Report 6382096-3 (Version None)
Quarter: 2009Q3

REPORT INFORMATION
  Report Type: 
  Country: None (occurrence: None)
  Receive Date: 20090930
  Receipt Date: 20090921
  Transmission Date: 20100115
  Serious: Yes (Other)
  Sender: FDA-Public Use
  Company Number: PHHY2009IE11317

PATIENT
  Sex: Male

DRUGS (4)
  1. CLOZARIL [Suspect]
     Indication: SCHIZOPHRENIA
     Dosage: UNK
     Dates: start: 20081222
  2. ARIPIPRAZOLE [Concomitant]
     Dosage: 10 MG, OD
     Dates: start: 20090811
  3. CITALOPRAM HYDROBROMIDE [Concomitant]
     Dosage: 20 MG, OD
  4. KWELLS [Concomitant]
     Dosage: 1 TABLET, BD

REACTIONS (1)
  - HAEMOGLOBIN INCREASED [None]
